APPROVED DRUG PRODUCT: CHLORDIAZEPOXIDE HYDROCHLORIDE
Active Ingredient: CHLORDIAZEPOXIDE HYDROCHLORIDE
Strength: 5MG
Dosage Form/Route: CAPSULE;ORAL
Application: A088705 | Product #001
Applicant: TEVA PHARMACEUTICALS USA INC
Approved: Jan 18, 1985 | RLD: No | RS: No | Type: DISCN